FAERS Safety Report 19188874 (Version 1)
Quarter: 2021Q2

REPORT INFORMATION
  Report Type: Spontaneous
  Country: US (occurrence: US)
  Receive Date: 20210428
  Receipt Date: 20210428
  Transmission Date: 20210717
  Serious: Yes (Other)
  Sender: FDA-Public Use
  Company Number: US-EMD SERONO-230946K09USA

PATIENT
  Age: 62 Year
  Sex: Female
  Weight: 68 kg

DRUGS (6)
  1. REBIF [Suspect]
     Active Substance: INTERFERON BETA-1A
     Indication: MULTIPLE SCLEROSIS
     Route: 058
     Dates: start: 20030725
  2. CYMBALTA [Concomitant]
     Active Substance: DULOXETINE HYDROCHLORIDE
     Indication: DEPRESSION
  3. CELEBREX [Concomitant]
     Active Substance: CELECOXIB
     Indication: OSTEOPOROSIS
  4. PROVIGIL [Concomitant]
     Active Substance: MODAFINIL
     Indication: FATIGUE
  5. LISINOPRIL. [Concomitant]
     Active Substance: LISINOPRIL
     Indication: HYPERTENSION
  6. BACLOFEN. [Concomitant]
     Active Substance: BACLOFEN
     Indication: MUSCLE SPASMS

REACTIONS (2)
  - Type 2 diabetes mellitus [Recovering/Resolving]
  - Bladder disorder [Recovering/Resolving]

NARRATIVE: CASE EVENT DATE: 200812
